FAERS Safety Report 10760277 (Version 2)
Quarter: 2015Q1

REPORT INFORMATION
  Report Type: Spontaneous
  Country: US (occurrence: US)
  Receive Date: 20150204
  Receipt Date: 20150313
  Transmission Date: 20150721
  Serious: Yes (Other)
  Sender: FDA-Public Use
  Company Number: US-AMGEN-USASP2015008707

PATIENT
  Age: 49 Year
  Sex: Female

DRUGS (2)
  1. ENBREL [Suspect]
     Active Substance: ETANERCEPT
     Indication: RHEUMATOID ARTHRITIS
     Dosage: 50 MG, QWK
     Route: 065
     Dates: start: 20140311
  2. ENBREL [Suspect]
     Active Substance: ETANERCEPT

REACTIONS (12)
  - Rheumatoid arthritis [Not Recovered/Not Resolved]
  - Urinary tract infection [Recovered/Resolved]
  - Pyrexia [Recovered/Resolved]
  - Mobility decreased [Recovered/Resolved]
  - Gastrooesophageal reflux disease [Unknown]
  - Upper respiratory tract infection [Recovered/Resolved]
  - Nephrolithiasis [Recovered/Resolved]
  - Blood pressure abnormal [Unknown]
  - Mental impairment [Recovered/Resolved]
  - Fibromyalgia [Not Recovered/Not Resolved]
  - Incorrect dose administered by device [Unknown]
  - Injection site extravasation [Recovered/Resolved]

NARRATIVE: CASE EVENT DATE: 2014
